FAERS Safety Report 4574998-5 (Version None)
Quarter: 2005Q1

REPORT INFORMATION
  Report Type: 
  Country: None (occurrence: None)
  Receive Date: 20050208
  Receipt Date: 20041222
  Transmission Date: 20050727
  Serious: Yes (Hospitalization)
  Sender: FDA-Public Use
  Company Number: FR-ROCHE-390373

PATIENT
  Age: 59 Year
  Sex: Male
  Weight: 93 kg

DRUGS (8)
  1. ROFERON-A [Suspect]
     Dosage: GIVEN FOR 6 DAYS OUT OF 7
     Route: 058
     Dates: start: 20000615
  2. ROFERON-A [Suspect]
     Dosage: DOSAGE REDUCED AFTER 23 NOVEMBER 2004
     Route: 058
  3. SORIATANE [Concomitant]
     Route: 048
     Dates: start: 20020615
  4. BACTRIM [Concomitant]
     Indication: LYMPHOPENIA
     Route: 048
     Dates: start: 20020615
  5. FUNGIZONE [Concomitant]
     Indication: MYCOSIS FUNGOIDES
  6. FLUCONAZOLE [Concomitant]
     Indication: MYCOSIS FUNGOIDES
     Route: 048
  7. TARDYFERON [Concomitant]
     Indication: IRON DEFICIENCY
     Route: 048
     Dates: start: 20040715
  8. ZYRTEC [Concomitant]
     Indication: PRURITUS
     Route: 048
     Dates: start: 20020615

REACTIONS (1)
  - ATRIAL FIBRILLATION [None]
